FAERS Safety Report 25184006 (Version 2)
Quarter: 2025Q2

REPORT INFORMATION
  Report Type: Report from Study
  Country: US (occurrence: US)
  Receive Date: 20250410
  Receipt Date: 20250411
  Transmission Date: 20250717
  Serious: Yes (Death, Life-Threatening, Hospitalization)
  Sender: EISAI
  Company Number: US-Eisai-EC-2025-187287

PATIENT
  Age: 78 Year
  Sex: Male
  Weight: 133 kg

DRUGS (2)
  1. ERIBULIN [Suspect]
     Active Substance: ERIBULIN
     Indication: Transitional cell carcinoma
     Dates: start: 20250114, end: 20250325
  2. GEMCITABINE HYDROCHLORIDE [Suspect]
     Active Substance: GEMCITABINE HYDROCHLORIDE
     Indication: Transitional cell carcinoma
     Dates: start: 20250114, end: 20250325

REACTIONS (2)
  - Respiratory failure [Fatal]
  - Sepsis [Unknown]

NARRATIVE: CASE EVENT DATE: 20250405
